FAERS Safety Report 25075117 (Version 1)
Quarter: 2025Q1

REPORT INFORMATION
  Report Type: Spontaneous
  Country: CA (occurrence: CA)
  Receive Date: 20250313
  Receipt Date: 20250313
  Transmission Date: 20250409
  Serious: Yes (Other)
  Sender: CELLTRION
  Company Number: CA-PFIZER INC-202500052421

PATIENT

DRUGS (1)
  1. INFLECTRA [Suspect]
     Active Substance: INFLIXIMAB-DYYB
     Indication: Polyarteritis nodosa
     Route: 042
     Dates: start: 20240619, end: 20250106

REACTIONS (3)
  - Throat tightness [Unknown]
  - Vomiting [Unknown]
  - Back pain [Unknown]
